FAERS Safety Report 8349479-3 (Version None)
Quarter: 2012Q2

REPORT INFORMATION
  Report Type: 
  Country: None (occurrence: None)
  Receive Date: 20120510
  Receipt Date: 20100913
  Transmission Date: 20120825
  Serious: No
  Sender: FDA-Public Use
  Company Number: US-TEVA-2010004868

PATIENT
  Sex: Female
  Weight: 61.29 kg

DRUGS (3)
  1. NUVIGIL [Suspect]
     Indication: FATIGUE
     Dosage: 150 MILLIGRAM;
     Route: 048
     Dates: start: 20100501
  2. HYZAAR [Concomitant]
     Indication: HYPERTENSION
     Dates: start: 20070101
  3. LIPITOR [Concomitant]
     Indication: BLOOD CHOLESTEROL
     Dates: start: 20070101

REACTIONS (1)
  - DRUG INEFFECTIVE FOR UNAPPROVED INDICATION [None]
